FAERS Safety Report 14269042 (Version 2)
Quarter: 2018Q1

REPORT INFORMATION
  Report Type: Spontaneous
  Country: AU (occurrence: AU)
  Receive Date: 20171211
  Receipt Date: 20180104
  Transmission Date: 20180508
  Serious: Yes (Other)
  Sender: FDA-Public Use
  Company Number: AU-BAUSCH-BL-2017-032685

PATIENT
  Age: 83 Year
  Sex: Female

DRUGS (14)
  1. POTASSIUM IODIDE. [Concomitant]
     Active Substance: POTASSIUM IODIDE
     Indication: PRODUCT USED FOR UNKNOWN INDICATION
     Dosage: SATURATED SOLUTION
     Route: 061
  2. METFORMIN [Concomitant]
     Active Substance: METFORMIN HYDROCHLORIDE
     Indication: PRODUCT USED FOR UNKNOWN INDICATION
  3. POTASSIUM [Concomitant]
     Active Substance: POTASSIUM
     Indication: PRODUCT USED FOR UNKNOWN INDICATION
  4. PREDNISOLONE. [Suspect]
     Active Substance: PREDNISOLONE
     Indication: PUSTULAR PSORIASIS
     Route: 065
     Dates: start: 201102
  5. LISINOPRIL. [Concomitant]
     Active Substance: LISINOPRIL
     Indication: PRODUCT USED FOR UNKNOWN INDICATION
  6. CICLOSPORIN [Suspect]
     Active Substance: CYCLOSPORINE
     Indication: PUSTULAR PSORIASIS
     Route: 065
  7. CALCIPOTRIOL, BETAMETHASONE DIPROPIONATE [Concomitant]
     Indication: PRODUCT USED FOR UNKNOWN INDICATION
     Route: 061
  8. FOLIC ACID. [Concomitant]
     Active Substance: FOLIC ACID
     Indication: PUSTULAR PSORIASIS
     Dosage: ON THE FOLLOWING DAY
  9. MICONAZOLE 2 PERCENT [Concomitant]
     Active Substance: MICONAZOLE
     Indication: PRODUCT USED FOR UNKNOWN INDICATION
     Route: 061
  10. THALIDOMIDE [Concomitant]
     Active Substance: THALIDOMIDE
     Indication: PUSTULAR PSORIASIS
     Dates: start: 2010
  11. METHOTREXATE. [Concomitant]
     Active Substance: METHOTREXATE
     Indication: PUSTULAR PSORIASIS
     Dates: start: 2009
  12. VITAMIN D [Concomitant]
     Active Substance: CHOLECALCIFEROL
     Indication: SUPPLEMENTATION THERAPY
  13. USTEKINUMAB [Concomitant]
     Active Substance: USTEKINUMAB
     Indication: PUSTULAR PSORIASIS
     Dates: start: 2010
  14. FUROSEMIDE. [Concomitant]
     Active Substance: FUROSEMIDE
     Indication: PRODUCT USED FOR UNKNOWN INDICATION

REACTIONS (2)
  - Hypertension [Unknown]
  - Renal impairment [Unknown]

NARRATIVE: CASE EVENT DATE: 2010
